FAERS Safety Report 4475819-1 (Version None)
Quarter: 2004Q4

REPORT INFORMATION
  Report Type: 
  Country: None (occurrence: None)
  Receive Date: 20041015
  Receipt Date: 20040928
  Transmission Date: 20050328
  Serious: Yes (Other)
  Sender: FDA-Public Use
  Company Number: PHEH2004US10391

PATIENT
  Age: 67 Year
  Sex: Male

DRUGS (3)
  1. ZOMETA [Suspect]
     Indication: PROSTATE CANCER
     Dosage: 4 MG MONTHLY
     Route: 042
     Dates: start: 20020729, end: 20040915
  2. TAXOTERE [Concomitant]
     Dates: start: 20020729, end: 20020930
  3. DECADRON [Concomitant]
     Dates: start: 20020729, end: 20020930

REACTIONS (10)
  - DENTAL OPERATION [None]
  - ENDODONTIC PROCEDURE [None]
  - INFECTION [None]
  - MUCOSAL ULCERATION [None]
  - OSTEOMYELITIS [None]
  - OSTEONECROSIS [None]
  - PAIN [None]
  - PYREXIA [None]
  - TOOTH DISORDER [None]
  - TOOTH EXTRACTION [None]
